FAERS Safety Report 10640650 (Version 1)
Quarter: 2014Q4

REPORT INFORMATION
  Report Type: Spontaneous
  Country: US (occurrence: None)
  Receive Date: 20141205
  Receipt Date: 20141205
  Transmission Date: 20150529
  Serious: Yes (Other)
  Sender: FDA-Public Use
  Company Number: 2637134

PATIENT
  Age: 50 Year
  Sex: Male
  Weight: 81.82 kg

DRUGS (1)
  1. PROPOFOL 1% INJECTABLE EMULSION, 10 MG/ML [Suspect]
     Active Substance: PROPOFOL
     Indication: COLONOSCOPY
     Route: 042
     Dates: start: 20141114

REACTIONS (8)
  - Pharyngeal disorder [None]
  - Erythema [None]
  - Eye swelling [None]
  - Ocular hyperaemia [None]
  - Chest discomfort [None]
  - Eye pruritus [None]
  - Pruritus [None]
  - Hypersensitivity [None]

NARRATIVE: CASE EVENT DATE: 20141114
